FAERS Safety Report 23847705 (Version 1)
Quarter: 2024Q2

REPORT INFORMATION
  Report Type: Spontaneous
  Country: US (occurrence: US)
  Receive Date: 20240513
  Receipt Date: 20240513
  Transmission Date: 20240716
  Serious: Yes (Other)
  Sender: FDA-Public Use
  Company Number: US-SA-2024SA014795

PATIENT
  Age: 92 Year
  Sex: Female

DRUGS (1)
  1. DUPIXENT [Suspect]
     Active Substance: DUPILUMAB
     Indication: Drug therapy
     Dosage: 300 MG, QOW
     Route: 058

REACTIONS (4)
  - Transient ischaemic attack [Unknown]
  - Fungal infection [Unknown]
  - Pruritus [Unknown]
  - Insomnia [Unknown]
